FAERS Safety Report 20064496 (Version 2)
Quarter: 2021Q4

REPORT INFORMATION
  Report Type: Spontaneous
  Country: NL (occurrence: NL)
  Receive Date: 20211112
  Receipt Date: 20211208
  Transmission Date: 20220304
  Serious: Yes (Death)
  Sender: FDA-Public Use
  Company Number: None

PATIENT
  Age: 50 Year
  Sex: Female
  Weight: 70 kg

DRUGS (2)
  1. DEXAMETHASONE [Suspect]
     Active Substance: DEXAMETHASONE
     Indication: COVID-19
     Dosage: 10 DAY CURE, THERAPY END DATE: ASKU
     Route: 065
     Dates: start: 20210725
  2. TOCILIZUMAB/ TOCILIZUMAB NVZA [Concomitant]
     Dosage: THERAPY START AND END DATE: ASKU

REACTIONS (4)
  - Bronchopulmonary aspergillosis [Fatal]
  - Renal failure [Fatal]
  - Septic shock [Fatal]
  - Cardiac failure [Fatal]

NARRATIVE: CASE EVENT DATE: 20210814
